FAERS Safety Report 8246359-9 (Version None)
Quarter: 2012Q1

REPORT INFORMATION
  Report Type: 
  Country: None (occurrence: None)
  Receive Date: 20120330
  Receipt Date: 20120321
  Transmission Date: 20120608
  Serious: Yes (Hospitalization, Other)
  Sender: FDA-Public Use
  Company Number: US-ABBOTT-12P-163-0917252-00

PATIENT
  Sex: Male
  Weight: 99.88 kg

DRUGS (7)
  1. LOVASTATIN [Concomitant]
     Indication: PRODUCT USED FOR UNKNOWN INDICATION
  2. NIASPAN [Suspect]
  3. PLAVIX [Concomitant]
     Indication: PRODUCT USED FOR UNKNOWN INDICATION
  4. ASPIRIN [Concomitant]
     Indication: PRODUCT USED FOR UNKNOWN INDICATION
     Dosage: 30 MINUTES BEFORE NIASPAN
  5. NIASPAN [Suspect]
     Indication: HIGH DENSITY LIPOPROTEIN DECREASED
     Dates: start: 20060101
  6. NIASPAN [Suspect]
     Indication: LOW DENSITY LIPOPROTEIN INCREASED
     Dates: end: 20090101
  7. COUMADIN [Concomitant]
     Indication: PRODUCT USED FOR UNKNOWN INDICATION

REACTIONS (15)
  - VIRAL INFECTION [None]
  - ABDOMINAL PAIN [None]
  - INCISION SITE PAIN [None]
  - HERNIA [None]
  - ABDOMINAL HERNIA [None]
  - FLUSHING [None]
  - THROMBOSIS IN DEVICE [None]
  - VOMITING [None]
  - CORONARY ARTERY OCCLUSION [None]
  - SKIN BURNING SENSATION [None]
  - PULMONARY EMBOLISM [None]
  - INCISION SITE COMPLICATION [None]
  - DIARRHOEA [None]
  - DEHYDRATION [None]
  - ABDOMINAL STRANGULATED HERNIA [None]
